FAERS Safety Report 4551212-8 (Version None)
Quarter: 2005Q1

REPORT INFORMATION
  Report Type: 
  Country: None (occurrence: None)
  Receive Date: 20050106
  Receipt Date: 20041222
  Transmission Date: 20050727
  Serious: Yes (Death)
  Sender: FDA-Public Use
  Company Number: 2004JP002279

PATIENT
  Age: 24 Year
  Sex: Male

DRUGS (2)
  1. PROGRAF [Suspect]
     Indication: BONE MARROW TRANSPLANT
  2. METHOTREXATE [Concomitant]

REACTIONS (5)
  - ATYPICAL MYCOBACTERIAL INFECTION [None]
  - BRONCHITIS CHRONIC [None]
  - GRAFT VERSUS HOST DISEASE [None]
  - MYCOBACTERIUM AVIUM COMPLEX INFECTION [None]
  - PNEUMONIA [None]
